FAERS Safety Report 20790843 (Version 4)
Quarter: 2022Q2

REPORT INFORMATION
  Report Type: Report from Study
  Country: SK (occurrence: SK)
  Receive Date: 20220505
  Receipt Date: 20220523
  Transmission Date: 20220721
  Serious: Yes (Other)
  Sender: FDA-Public Use
  Company Number: SK-GLAXOSMITHKLINE-SK2022GSK073272

PATIENT

DRUGS (1)
  1. GEPOTIDACIN [Suspect]
     Active Substance: GEPOTIDACIN
     Indication: Cystitis
     Dosage: UNK, BID
     Dates: start: 20220405, end: 20220407

REACTIONS (1)
  - Dysarthria [Recovered/Resolved]

NARRATIVE: CASE EVENT DATE: 20220407
